FAERS Safety Report 17174554 (Version 1)
Quarter: 2019Q4

REPORT INFORMATION
  Report Type: Report from Study
  Country: US (occurrence: US)
  Receive Date: 20191219
  Receipt Date: 20191219
  Transmission Date: 20200122
  Serious: Yes (Hospitalization)
  Sender: FDA-Public Use
  Company Number: US-SEBELA IRELAND LIMITED-2019SEB00251

PATIENT
  Age: 63 Year
  Sex: Male
  Weight: 91 kg

DRUGS (10)
  1. LISINOPRIL. [Concomitant]
     Active Substance: LISINOPRIL
     Dosage: 10 MG, 2X/DAY
     Route: 048
     Dates: start: 2010
  2. HUMIRA [Suspect]
     Active Substance: ADALIMUMAB
     Dosage: 40 MG, 1X/WEEK
     Route: 058
     Dates: start: 20190201, end: 20190528
  3. COLAZAL [Concomitant]
     Active Substance: BALSALAZIDE DISODIUM
     Dosage: 3 G, 2X/DAY
     Route: 048
     Dates: start: 1994
  4. CANASA [Concomitant]
     Active Substance: MESALAMINE
     Dosage: 1 DOSAGE UNITS, AS NEEDED
     Route: 054
     Dates: start: 201612
  5. METFORMIN [Concomitant]
     Active Substance: METFORMIN HYDROCHLORIDE
     Dosage: 500 MG, 1X/DAY
     Route: 048
     Dates: start: 2007
  6. AZATHIOPRINE. [Suspect]
     Active Substance: AZATHIOPRINE
     Indication: COLITIS ULCERATIVE
     Dosage: 100 MG, 1X/DAY
     Route: 048
     Dates: start: 1994, end: 20190628
  7. HUMIRA [Suspect]
     Active Substance: ADALIMUMAB
     Indication: COLITIS ULCERATIVE
     Dosage: 40 MG, 2X/MONTH
     Route: 058
     Dates: start: 201312, end: 20190201
  8. MULTIVITAMIN [Concomitant]
     Active Substance: VITAMINS
     Dosage: 1 TABLETS, 1X/DAY
     Route: 048
     Dates: start: 2005
  9. ASPIRIN. [Concomitant]
     Active Substance: ASPIRIN
     Dosage: 81 MG, 1X/DAY
     Route: 048
     Dates: start: 20070613
  10. VITAMIN D [Concomitant]
     Active Substance: VITAMIN D NOS
     Dosage: 2000 IU, 1X/DAY
     Route: 048
     Dates: start: 2007

REACTIONS (1)
  - Histoplasmosis disseminated [Not Recovered/Not Resolved]

NARRATIVE: CASE EVENT DATE: 201905
